FAERS Safety Report 4929862-6 (Version None)
Quarter: 2006Q1

REPORT INFORMATION
  Report Type: 
  Country: None (occurrence: None)
  Receive Date: 20060301
  Receipt Date: 20060201
  Transmission Date: 20060701
  Serious: Yes (Hospitalization)
  Sender: FDA-Public Use
  Company Number: US-MERCK-0602USA00253

PATIENT
  Age: 67 Year
  Sex: Male
  Weight: 80 kg

DRUGS (4)
  1. VIOXX [Suspect]
     Indication: MONARTHRITIS
     Route: 048
     Dates: start: 19980101, end: 20040601
  2. DEPAKOTE [Concomitant]
     Route: 048
  3. EXELON [Concomitant]
     Route: 048
  4. PAXIL [Concomitant]
     Route: 048

REACTIONS (3)
  - CEREBROVASCULAR DISORDER [None]
  - CHEST PAIN [None]
  - MYOCARDIAL INFARCTION [None]
